FAERS Safety Report 5054553-3 (Version None)
Quarter: 2006Q3

REPORT INFORMATION
  Report Type: 
  Country: None (occurrence: None)
  Receive Date: 20060714
  Receipt Date: 20060627
  Transmission Date: 20061208
  Serious: Yes (Death, Other)
  Sender: FDA-Public Use
  Company Number: CA200606005830

PATIENT
  Sex: Female

DRUGS (2)
  1. GEMCITABINE HYDROCHLORIDE (GEMCITABINE HYDROCHLORIDE) [Suspect]
     Indication: NON-SMALL CELL LUNG CANCER
     Dosage: 1700 MG,
     Dates: start: 20060609
  2. CARBOPLATIN [Concomitant]

REACTIONS (3)
  - EPISTAXIS [None]
  - EXSANGUINATION [None]
  - PLATELET COUNT DECREASED [None]
